FAERS Safety Report 16042595 (Version 2)
Quarter: 2019Q1

REPORT INFORMATION
  Report Type: Spontaneous
  Country: US (occurrence: US)
  Receive Date: 20190306
  Receipt Date: 20190312
  Transmission Date: 20190418
  Serious: Yes (Hospitalization)
  Sender: FDA-Public Use
  Company Number: US-PFIZER INC-2019093354

PATIENT
  Age: 42 Year
  Sex: Female

DRUGS (1)
  1. ALPRAZOLAM. [Suspect]
     Active Substance: ALPRAZOLAM
     Dosage: UNK

REACTIONS (6)
  - Hypoxia [Recovering/Resolving]
  - Asthenia [Unknown]
  - Bradycardia [Unknown]
  - Overdose [Unknown]
  - Dyspnoea [Recovering/Resolving]
  - Hypotension [Unknown]
